FAERS Safety Report 19612631 (Version 1)
Quarter: 2021Q3

REPORT INFORMATION
  Report Type: Spontaneous
  Country: DE (occurrence: DE)
  Receive Date: 20210727
  Receipt Date: 20210727
  Transmission Date: 20211014
  Serious: Yes (Other)
  Sender: FDA-Public Use
  Company Number: DE-TEVA-2021-DE-1935566

PATIENT
  Age: 64 Year
  Sex: Female
  Weight: 72 kg

DRUGS (1)
  1. ATORVASTATIN [Suspect]
     Active Substance: ATORVASTATIN
     Dosage: 40 MILLIGRAM DAILY;  EVERY DAYS

REACTIONS (6)
  - Swelling [Unknown]
  - Paraesthesia [Unknown]
  - Dyspnoea [Unknown]
  - Deafness [Unknown]
  - Peripheral swelling [Unknown]
  - Somnolence [Unknown]
